FAERS Safety Report 5367488-3 (Version None)
Quarter: 2007Q2

REPORT INFORMATION
  Report Type: 
  Country: None (occurrence: None)
  Receive Date: 20070622
  Receipt Date: 20061004
  Transmission Date: 20071010
  Serious: No
  Sender: FDA-Public Use
  Company Number: US-ASTRAZENECA-2006UW18228

PATIENT
  Age: 5 Year
  Sex: Male
  Weight: 23.6 kg

DRUGS (2)
  1. PULMICORT RESPULES [Suspect]
     Indication: ASTHMA
     Route: 055
     Dates: start: 20060706
  2. PULMICORT RESPULES [Suspect]
     Route: 055

REACTIONS (2)
  - ABNORMAL DREAMS [None]
  - MENTAL STATUS CHANGES [None]
